FAERS Safety Report 13593764 (Version 1)
Quarter: 2017Q2

REPORT INFORMATION
  Report Type: Report from Study
  Country: DE (occurrence: DE)
  Receive Date: 20170530
  Receipt Date: 20170530
  Transmission Date: 20170830
  Serious: Yes (Other)
  Sender: FDA-Public Use
  Company Number: DE-BIOGEN-2017BI00408779

PATIENT
  Age: 32 Year
  Sex: Female
  Weight: 63 kg

DRUGS (3)
  1. FOLIC ACID. [Concomitant]
     Active Substance: FOLIC ACID
     Indication: PREGNANCY
     Route: 065
     Dates: end: 201702
  2. AVONEX [Suspect]
     Active Substance: INTERFERON BETA-1A
     Indication: MULTIPLE SCLEROSIS
     Route: 058
     Dates: start: 20130201
  3. L-THYROXIN [Concomitant]
     Active Substance: LEVOTHYROXINE SODIUM
     Indication: HYPOTHYROIDISM
     Route: 065

REACTIONS (2)
  - Maternal exposure during pregnancy [Recovered/Resolved]
  - Uterine scar [Recovered/Resolved]

NARRATIVE: CASE EVENT DATE: 20170216
